FAERS Safety Report 5024813-0 (Version None)
Quarter: 2006Q2

REPORT INFORMATION
  Report Type: 
  Country: None (occurrence: None)
  Receive Date: 20060426
  Receipt Date: 20060221
  Transmission Date: 20061013
  Serious: Yes (Other)
  Sender: FDA-Public Use
  Company Number: 2006026485

PATIENT
  Age: 53 Year
  Sex: Female
  Weight: 81.6475 kg

DRUGS (2)
  1. LYRICA [Suspect]
     Indication: NERVE INJURY
     Dosage: 300 MG (100 MG,3 IN 1 D),ORAL
     Route: 048
     Dates: start: 20051215, end: 20060126
  2. LEVOTHYROXINE SODIUM [Concomitant]

REACTIONS (8)
  - ACTIVITIES OF DAILY LIVING IMPAIRED [None]
  - ANXIETY [None]
  - DIFFICULTY IN WALKING [None]
  - HEADACHE [None]
  - HYPOKINESIA [None]
  - NAUSEA [None]
  - PANIC ATTACK [None]
  - VISION BLURRED [None]
